FAERS Safety Report 5560792-5 (Version None)
Quarter: 2007Q4

REPORT INFORMATION
  Report Type: 
  Country: None (occurrence: None)
  Receive Date: 20071215
  Receipt Date: 20071119
  Transmission Date: 20080405
  Serious: No
  Sender: FDA-Public Use
  Company Number: US-ABBOTT-07P-163-0425883-00

PATIENT

DRUGS (3)
  1. HUMIRA [Suspect]
     Indication: CROHN'S DISEASE
     Route: 058
  2. HUMIRA [Suspect]
     Route: 058
  3. METHOTREXATE [Concomitant]
     Indication: CROHN'S DISEASE

REACTIONS (3)
  - ARTHRALGIA [None]
  - CROHN'S DISEASE [None]
  - DRUG INEFFECTIVE [None]
